FAERS Safety Report 19530455 (Version 1)
Quarter: 2021Q3

REPORT INFORMATION
  Report Type: Spontaneous
  Country: US (occurrence: US)
  Receive Date: 20210713
  Receipt Date: 20210713
  Transmission Date: 20211014
  Serious: Yes (Other)
  Sender: FDA-Public Use
  Company Number: US-STRIDES ARCOLAB LIMITED-2021SP010129

PATIENT
  Age: 72 Year
  Sex: Male

DRUGS (1)
  1. RANITIDINE. [Suspect]
     Active Substance: RANITIDINE
     Indication: DYSPEPSIA
     Dosage: UNK
     Route: 048
     Dates: start: 200903, end: 201909

REACTIONS (4)
  - Tongue neoplasm malignant stage unspecified [Recovered/Resolved]
  - Lung neoplasm malignant [Recovered/Resolved]
  - Tongue neoplasm malignant stage unspecified [Recovered/Resolved]
  - Bladder cancer [Recovered/Resolved]

NARRATIVE: CASE EVENT DATE: 20100527
